FAERS Safety Report 4294430-9 (Version None)
Quarter: 2004Q1

REPORT INFORMATION
  Report Type: 
  Country: None (occurrence: None)
  Receive Date: 20040211
  Receipt Date: 20040201
  Transmission Date: 20041129
  Serious: Yes (Death)
  Sender: FDA-Public Use
  Company Number: 163-20785-04020062

PATIENT

DRUGS (2)
  1. THALIDOMIDE (THALIDOMIDE) (UNKNOWN) [Suspect]
     Indication: MALIGNANT MELANOMA
     Dosage: 100 MG - 400MG, QHS; ORAL
     Route: 048
  2. TEMOZOLOMIDE (TEMOZOLOMIDE) (UNKNOWN) [Suspect]
     Indication: MALIGNANT MELANOMA
     Dosage: 75 MG/M2, QD, UNKNOWN
     Route: 065

REACTIONS (1)
  - HAEMORRHAGIC STROKE [None]
